FAERS Safety Report 13916159 (Version 1)
Quarter: 2017Q3

REPORT INFORMATION
  Report Type: Report from Study
  Country: US (occurrence: US)
  Receive Date: 20170829
  Receipt Date: 20170829
  Transmission Date: 20171127
  Serious: Yes (Hospitalization)
  Sender: FDA-Public Use
  Company Number: US-PFIZER INC-2017368116

PATIENT
  Age: 81 Year
  Sex: Female
  Weight: 51 kg

DRUGS (9)
  1. AZD4547 [Suspect]
     Active Substance: INVESTIGATIONAL PRODUCT
     Dosage: 80 MG, 2X/DAY
     Route: 048
     Dates: start: 20170621, end: 20170727
  2. LACTULOSE. [Concomitant]
     Active Substance: LACTULOSE
  3. MIRALAX [Concomitant]
     Active Substance: POLYETHYLENE GLYCOL 3350
  4. SYNTHROID [Concomitant]
     Active Substance: LEVOTHYROXINE SODIUM
  5. MORPHINE SULFATE. [Suspect]
     Active Substance: MORPHINE SULFATE
  6. ZYPREXA [Concomitant]
     Active Substance: OLANZAPINE
  7. AZD4547 [Suspect]
     Active Substance: INVESTIGATIONAL PRODUCT
     Dosage: 80 MG, 2X/DAY
     Route: 048
     Dates: start: 20170719
  8. AZD4547 [Suspect]
     Active Substance: INVESTIGATIONAL PRODUCT
     Dosage: 80 MG, 2X/DAY
     Route: 048
     Dates: start: 20170731
  9. SENOKOT [Concomitant]
     Active Substance: SENNOSIDES

REACTIONS (4)
  - Small intestinal obstruction [Not Recovered/Not Resolved]
  - Constipation [Not Recovered/Not Resolved]
  - Vomiting [Not Recovered/Not Resolved]
  - Nausea [Not Recovered/Not Resolved]

NARRATIVE: CASE EVENT DATE: 20170727
